FAERS Safety Report 8279145 (Version 2)
Quarter: 2012Q4

REPORT INFORMATION
  Report Type: 
  Country: IL (occurrence: IL)
  Receive Date: 20111208
  Receipt Date: 20121026
  Transmission Date: 20130627
  Serious: Yes (Hospitalization, Other)
  Sender: FDA-Public Use
  Company Number: IL-JNJFOC-20111200221

PATIENT
  Age: 52 Year
  Sex: Female

DRUGS (4)
  1. REMICADE [Suspect]
     Indication: CROHN^S DISEASE
     Dosage: has received 2 infusions
     Route: 042
     Dates: start: 20110905
  2. HYDROCORTISONE [Concomitant]
     Indication: PREMEDICATION
     Route: 065
  3. AHISTON [Concomitant]
     Indication: PREMEDICATION
     Route: 065
  4. PARACETAMOL [Concomitant]
     Indication: PREMEDICATION
     Route: 065

REACTIONS (4)
  - Suffocation feeling [Unknown]
  - Stridor [Unknown]
  - Restlessness [Unknown]
  - Infusion related reaction [Unknown]
